FAERS Safety Report 7309614-2 (Version None)
Quarter: 2011Q1

REPORT INFORMATION
  Report Type: 
  Country: None (occurrence: None)
  Receive Date: 20110223
  Receipt Date: 20110209
  Transmission Date: 20110831
  Serious: Yes (Other)
  Sender: FDA-Public Use
  Company Number: GB-MYLANLABS-2011S1002876

PATIENT
  Age: 67 Year
  Sex: Male
  Weight: 96 kg

DRUGS (3)
  1. CARDICOR [Concomitant]
     Indication: PALPITATIONS
  2. WARFARIN [Concomitant]
     Indication: PRODUCT USED FOR UNKNOWN INDICATION
     Dates: start: 20091129
  3. BISOPROLOL FUMARATE [Suspect]
     Indication: PALPITATIONS
     Route: 048
     Dates: start: 20090522, end: 20110101

REACTIONS (2)
  - TACHYCARDIA [None]
  - FEELING ABNORMAL [None]
